FAERS Safety Report 9294141 (Version 4)
Quarter: 2014Q4

REPORT INFORMATION
  Report Type: Report from Study
  Country: JP (occurrence: JP)
  Receive Date: 20130516
  Receipt Date: 20141215
  Transmission Date: 20150529
  Serious: Yes (Other)
  Sender: FDA-Public Use
  Company Number: JP-VERTEX PHARMACEUTICALS INC-2013-006072

PATIENT
  Age: 51 Year
  Sex: Male

DRUGS (9)
  1. REBETOL [Suspect]
     Active Substance: RIBAVIRIN
     Dosage: 400 MG, QD
     Route: 048
     Dates: start: 20120925, end: 20121009
  2. PEGINTRON [Suspect]
     Active Substance: PEGINTERFERON ALFA-2B
     Dosage: 1.5 ?G/KG, QW
     Route: 058
     Dates: start: 20120903, end: 20121119
  3. REBETOL [Suspect]
     Active Substance: RIBAVIRIN
     Dosage: 1000 MG, QD
     Route: 048
     Dates: start: 20120903, end: 20120924
  4. REBETOL [Suspect]
     Active Substance: RIBAVIRIN
     Dosage: 1000 MG, QD
     Route: 048
     Dates: start: 20121010, end: 20121126
  5. REBETOL [Suspect]
     Active Substance: RIBAVIRIN
     Indication: CHRONIC HEPATITIS C
     Dosage: UNK
     Route: 048
     Dates: start: 20120614
  6. VX-950 (TELAPREVIR) [Suspect]
     Active Substance: TELAPREVIR
     Indication: CHRONIC HEPATITIS C
     Dosage: 2250 MG, QD
     Route: 048
     Dates: start: 20120903, end: 20120924
  7. VX-950 (TELAPREVIR) [Suspect]
     Active Substance: TELAPREVIR
     Dosage: 1500 MG, QD
     Route: 048
     Dates: start: 20120925, end: 20121009
  8. VX-950 (TELAPREVIR) [Suspect]
     Active Substance: TELAPREVIR
     Dosage: 2250 MG, QD
     Route: 048
     Dates: start: 20121010, end: 20121126
  9. PEGINTRON [Suspect]
     Active Substance: PEGINTERFERON ALFA-2B
     Indication: CHRONIC HEPATITIS C
     Dosage: UNK
     Route: 058
     Dates: start: 20120614

REACTIONS (2)
  - Drug eruption [Recovered/Resolved]
  - Skin disorder [Unknown]

NARRATIVE: CASE EVENT DATE: 20121114
